FAERS Safety Report 7578857-5 (Version None)
Quarter: 2011Q2

REPORT INFORMATION
  Report Type: 
  Country: None (occurrence: None)
  Receive Date: 20110628
  Receipt Date: 20110627
  Transmission Date: 20111010
  Serious: Yes (Death, Other)
  Sender: FDA-Public Use
  Company Number: US-UCBSA-033214

PATIENT
  Sex: Female

DRUGS (7)
  1. TRAZODONE HCL [Concomitant]
     Indication: ANXIETY
     Dosage: 100
     Route: 048
  2. LAMOTRIGINE [Concomitant]
     Indication: DEPRESSION
     Dosage: 150
  3. REMICADE [Suspect]
     Indication: CROHN'S DISEASE
     Dosage: 6 DOSES TOTAL
     Dates: start: 20090101, end: 20101201
  4. MERCAPTOPURINE [Suspect]
     Indication: CROHN'S DISEASE
     Dates: end: 20101201
  5. CIMZIA [Suspect]
     Indication: CROHN'S DISEASE
     Route: 058
     Dates: start: 20101129, end: 20101212
  6. PREDNISONE [Suspect]
     Indication: CROHN'S DISEASE
     Dates: end: 20101201
  7. CYMBALTA [Concomitant]
     Indication: DEPRESSION
     Dosage: 60
     Route: 048

REACTIONS (9)
  - INTESTINAL OBSTRUCTION [None]
  - HEPATOSPLENIC T-CELL LYMPHOMA [None]
  - THROMBOCYTOPENIA [None]
  - SPLENOMEGALY [None]
  - HEPATOMEGALY [None]
  - ABDOMINAL ABSCESS [None]
  - CROHN'S DISEASE [None]
  - RESPIRATORY FAILURE [None]
  - HYPERBILIRUBINAEMIA [None]
